FAERS Safety Report 17873983 (Version 1)
Quarter: 2020Q2

REPORT INFORMATION
  Report Type: Spontaneous
  Country: US (occurrence: US)
  Receive Date: 20200609
  Receipt Date: 20200609
  Transmission Date: 20200714
  Serious: Yes (Hospitalization)
  Sender: FDA-Public Use
  Company Number: US-AMGEN-USASP2020089276

PATIENT
  Age: 17 Day
  Sex: Male
  Weight: 1.6 kg

DRUGS (2)
  1. EPOETIN ALFA [Suspect]
     Active Substance: ERYTHROPOIETIN
     Indication: ANAEMIA
     Dosage: 100 INTERNATIONAL UNIT/KILOGRAM, 2 TIMES/WK
     Route: 042
  2. EPOETIN ALFA [Suspect]
     Active Substance: ERYTHROPOIETIN
     Dosage: 200 INTERNATIONAL UNIT/KILOGRAM, 2 TIMES/WK
     Route: 042

REACTIONS (2)
  - Haemoglobin decreased [Recovering/Resolving]
  - Off label use [Unknown]
